FAERS Safety Report 22355479 (Version 1)
Quarter: 2023Q2

REPORT INFORMATION
  Report Type: Spontaneous
  Country: CN (occurrence: None)
  Receive Date: 20230523
  Receipt Date: 20230523
  Transmission Date: 20230722
  Serious: Yes (Other)
  Sender: FDA-Public Use
  Company Number: CN-ROCHE-3353235

PATIENT
  Age: 78 Year
  Sex: Female

DRUGS (7)
  1. GAZYVA [Suspect]
     Active Substance: OBINUTUZUMAB
     Indication: Splenic marginal zone lymphoma
     Dosage: CYCLE 1: THE PATIENT WAS GIVEN OBINUTUZUMAB 100 MG D1, 900 MG.?CYCLE 2: THE PATIENT WAS GIVEN OBINUT
     Route: 042
  2. DEXAMETHASONE [Concomitant]
     Active Substance: DEXAMETHASONE
  3. LEUKERAN [Concomitant]
     Active Substance: CHLORAMBUCIL
     Indication: Splenic marginal zone lymphoma
     Dosage: ONLY USED 16 MG
     Route: 048
  4. FELODIPINE [Concomitant]
     Active Substance: FELODIPINE
  5. GLICLAZIDE [Concomitant]
     Active Substance: GLICLAZIDE
  6. ACARBOSE [Concomitant]
     Active Substance: ACARBOSE
  7. ASPIRIN [Concomitant]
     Active Substance: ASPIRIN

REACTIONS (3)
  - White blood cell count decreased [Recovering/Resolving]
  - Platelet count decreased [Recovering/Resolving]
  - Off label use [Unknown]
